FAERS Safety Report 12138807 (Version 1)
Quarter: 2016Q1

REPORT INFORMATION
  Report Type: Spontaneous
  Country: US (occurrence: US)
  Receive Date: 20160302
  Receipt Date: 20160302
  Transmission Date: 20160526
  Serious: Yes (Other)
  Sender: FDA-Public Use
  Company Number: US-PFIZER INC-2016122293

PATIENT
  Age: 8 Year
  Sex: Female

DRUGS (2)
  1. STRATTERA [Concomitant]
     Active Substance: ATOMOXETINE HYDROCHLORIDE
     Indication: ATTENTION DEFICIT/HYPERACTIVITY DISORDER
     Dosage: UNK
  2. ZOLOFT [Suspect]
     Active Substance: SERTRALINE HYDROCHLORIDE
     Indication: GENERALISED ANXIETY DISORDER
     Dosage: 10 MG, UNK
     Dates: start: 2016

REACTIONS (9)
  - Restlessness [Unknown]
  - Panic attack [Unknown]
  - Screaming [Unknown]
  - Product use issue [Unknown]
  - Abnormal sleep-related event [Unknown]
  - Nightmare [Unknown]
  - Emotional disorder [Unknown]
  - Crying [Unknown]
  - Poor quality sleep [Unknown]

NARRATIVE: CASE EVENT DATE: 2016
